FAERS Safety Report 17846445 (Version 1)
Quarter: 2020Q2

REPORT INFORMATION
  Report Type: Spontaneous
  Country: GB (occurrence: GB)
  Receive Date: 20200601
  Receipt Date: 20200601
  Transmission Date: 20200714
  Serious: Yes (Disabling)
  Sender: FDA-Public Use
  Company Number: GB-PERRIGO-20GB007592

PATIENT
  Age: 40 Year
  Sex: Female
  Weight: 70 kg

DRUGS (2)
  1. NORZOL 40MG/ML PL00427/0068 [Suspect]
     Active Substance: METRONIDAZOLE BENZOATE
     Indication: INFECTED BITE
     Dosage: 1200 MG, QD
     Route: 048
     Dates: start: 20200426, end: 20200429
  2. DOXYCYCLINE. [Suspect]
     Active Substance: DOXYCYCLINE
     Indication: INFECTED BITE
     Dosage: ADVISED TO DO 5 DAYS INSTEAD OF 7 DAY COURSE.

REACTIONS (4)
  - Abdominal pain upper [Recovering/Resolving]
  - Parosmia [Unknown]
  - Headache [Recovering/Resolving]
  - Nausea [Recovering/Resolving]

NARRATIVE: CASE EVENT DATE: 20200426
